FAERS Safety Report 15750604 (Version 1)
Quarter: 2018Q4

REPORT INFORMATION
  Report Type: Spontaneous
  Country: US (occurrence: US)
  Receive Date: 20181206
  Receipt Date: 20181206
  Transmission Date: 20190205
  Serious: Yes (Other)
  Sender: FDA-Public Use
  Company Number: None

PATIENT
  Age: 52 Year
  Sex: Female
  Weight: 58.97 kg

DRUGS (1)
  1. AZELASTINE HCL [Suspect]
     Active Substance: AZELASTINE HYDROCHLORIDE
     Indication: DYSPNOEA
     Dosage: SPRAY EACH SIDE 2X^S A DAY NASAL SPRAY
     Dates: start: 20181115, end: 20181121

REACTIONS (4)
  - Dyspnoea [None]
  - Lung disorder [None]
  - Heart rate abnormal [None]
  - Chest discomfort [None]

NARRATIVE: CASE EVENT DATE: 20181121
